FAERS Safety Report 8571900-6 (Version None)
Quarter: 2012Q3

REPORT INFORMATION
  Report Type: 
  Country: None (occurrence: None)
  Receive Date: 20120806
  Receipt Date: 20120726
  Transmission Date: 20120928
  Serious: Yes (Other)
  Sender: FDA-Public Use
  Company Number: FI-SANOFI-AVENTIS-2012SA053048

PATIENT
  Age: 73 Year
  Sex: Male

DRUGS (6)
  1. FOLIC ACID [Concomitant]
     Indication: RHEUMATOID ARTHRITIS
     Dates: start: 19960101
  2. ACETYLSALICYLIC ACID SRT [Concomitant]
     Dosage: STRENGTH: 50 MG
  3. CALCIUM CARBONATE [Concomitant]
     Dosage: STRENGTH: CALCIUM CARBONATE/CHOLECALCIFEROL: 500 MG/400 IU
     Route: 048
  4. METHOTREXATE [Suspect]
     Indication: RHEUMATOID ARTHRITIS
     Route: 048
     Dates: start: 19961120, end: 20120507
  5. ARAVA [Suspect]
     Indication: RHEUMATOID ARTHRITIS
     Route: 048
     Dates: start: 20111101, end: 20120522
  6. EPROSARTAN MESILATE/HYDROCHLOROTHIAZIDE [Concomitant]
     Dosage: STRENGTH: EPROSARTAN MESILATE/ HYDROCHLOROTHIAZIDE : 600MG /12.5 MG
     Route: 048

REACTIONS (5)
  - PYREXIA [None]
  - COUGH [None]
  - LYMPHOCYTOSIS [None]
  - INTERSTITIAL LUNG DISEASE [None]
  - PULMONARY EOSINOPHILIA [None]
